FAERS Safety Report 5926941-1 (Version None)
Quarter: 2008Q4

REPORT INFORMATION
  Report Type: 
  Country: None (occurrence: None)
  Receive Date: 20081021
  Receipt Date: 20081021
  Transmission Date: 20090506
  Serious: Yes (Hospitalization)
  Sender: FDA-Public Use
  Company Number: None

PATIENT
  Age: 86 Year
  Sex: Male
  Weight: 75 kg

DRUGS (1)
  1. AUGMENTIN [Suspect]
     Indication: PNEUMONIA
     Dosage: 500/125 MG TID -Q 8 HRS- PO
     Route: 048

REACTIONS (4)
  - DIARRHOEA [None]
  - HYPERKALAEMIA [None]
  - HYPOPHAGIA [None]
  - METABOLIC ALKALOSIS [None]
